FAERS Safety Report 9163145 (Version 1)
Quarter: 2013Q1

REPORT INFORMATION
  Report Type: Spontaneous
  Country: US (occurrence: None)
  Receive Date: 20130225
  Receipt Date: 20130225
  Transmission Date: 20140127
  Serious: Yes (Hospitalization)
  Sender: FDA-Public Use
  Company Number: 2013AP002721

PATIENT
  Age: 50 Year
  Sex: Male

DRUGS (4)
  1. LEVETIRACETAM EXTENDED-RELEASE TABLETS [Suspect]
     Indication: COMPLEX PARTIAL SEIZURES
     Route: 048
  2. GABAPENTIN [Concomitant]
  3. VALPROIC ACID [Concomitant]
  4. ESOMEPRAZOLE [Concomitant]

REACTIONS (1)
  - Acute psychosis [None]
